FAERS Safety Report 10211277 (Version 1)
Quarter: 2014Q2

REPORT INFORMATION
  Report Type: Spontaneous
  Country: GR (occurrence: GR)
  Receive Date: 20140602
  Receipt Date: 20140602
  Transmission Date: 20141212
  Serious: Yes (Other)
  Sender: FDA-Public Use
  Company Number: PHHY2014GR065832

PATIENT
  Sex: Female

DRUGS (1)
  1. GILENYA [Suspect]
     Route: 048

REACTIONS (4)
  - White blood cell disorder [Unknown]
  - Basophil count decreased [Unknown]
  - Eosinophil count increased [Unknown]
  - Neutrophil count decreased [Unknown]
